FAERS Safety Report 22039937 (Version 1)
Quarter: 2023Q1

REPORT INFORMATION
  Report Type: Spontaneous
  Country: US (occurrence: None)
  Receive Date: 20230224
  Receipt Date: 20230224
  Transmission Date: 20230417
  Serious: Yes (Other)
  Sender: FDA-Public Use
  Company Number: None

PATIENT
  Age: 65 Year
  Sex: Female
  Weight: 69.75 kg

DRUGS (13)
  1. REFRESH OPTIVE DROPS [Suspect]
     Active Substance: CARBOXYMETHYLCELLULOSE SODIUM\GLYCERIN
     Indication: Dry eye
     Dosage: OTHER QUANTITY : .33 OUNCE(S);?FREQUENCY : TWICE A DAY;?
     Route: 047
     Dates: start: 20230120, end: 20230212
  2. GABAPENTIN [Concomitant]
     Active Substance: GABAPENTIN
  3. BACLOFEN [Concomitant]
     Active Substance: BACLOFEN
  4. BUSPIRONE [Concomitant]
     Active Substance: BUSPIRONE HYDROCHLORIDE
  5. CETIRIZINE HYDROCHLORIDE [Concomitant]
     Active Substance: CETIRIZINE HYDROCHLORIDE
  6. NAPROXEN [Concomitant]
     Active Substance: NAPROXEN
  7. SCOPOLAMINE [Concomitant]
     Active Substance: SCOPOLAMINE
  8. AMITRIPTYLN [Concomitant]
  9. VENTOLIN [Suspect]
     Active Substance: ALBUTEROL SULFATE
  10. GENTAMICIN [Concomitant]
     Active Substance: GENTAMICIN
  11. MAGNESIUM [Concomitant]
     Active Substance: MAGNESIUM
  12. VITAMIN B12 [Concomitant]
     Active Substance: CYANOCOBALAMIN
  13. VITAMIN D3 [Concomitant]
     Active Substance: CHOLECALCIFEROL

REACTIONS (4)
  - Instillation site pruritus [None]
  - Eye swelling [None]
  - Swelling of eyelid [None]
  - Hordeolum [None]

NARRATIVE: CASE EVENT DATE: 20230210
